FAERS Safety Report 16278352 (Version 3)
Quarter: 2023Q4

REPORT INFORMATION
  Report Type: Spontaneous
  Country: US (occurrence: None)
  Receive Date: 20190506
  Receipt Date: 20231013
  Transmission Date: 20240110
  Serious: Yes (Hospitalization, Other)
  Sender: FDA-Public Use
  Company Number: 2019SE60989

PATIENT
  Sex: Female
  Weight: 48.1 kg

DRUGS (38)
  1. NEXIUM [Suspect]
     Active Substance: ESOMEPRAZOLE MAGNESIUM
     Indication: Gastrooesophageal reflux disease
     Route: 048
     Dates: start: 200911, end: 201411
  2. PRILOSEC OTC [Suspect]
     Active Substance: OMEPRAZOLE MAGNESIUM
     Indication: Gastrooesophageal reflux disease
     Route: 048
     Dates: start: 200911, end: 201411
  3. PRILOSEC OTC [Suspect]
     Active Substance: OMEPRAZOLE MAGNESIUM
     Indication: Gastrooesophageal reflux disease
     Route: 048
     Dates: start: 2003, end: 2016
  4. PREVACID 24 HR [Suspect]
     Active Substance: LANSOPRAZOLE
     Indication: Gastrooesophageal reflux disease
     Dates: start: 200911, end: 201411
  5. PREVACID 24 HR [Suspect]
     Active Substance: LANSOPRAZOLE
     Indication: Gastrooesophageal reflux disease
     Dates: start: 2009, end: 2016
  6. PROTONIX [Suspect]
     Active Substance: PANTOPRAZOLE SODIUM
     Indication: Gastrooesophageal reflux disease
     Dates: start: 200911, end: 201411
  7. PROTONIX [Suspect]
     Active Substance: PANTOPRAZOLE SODIUM
     Indication: Gastrooesophageal reflux disease
     Dates: start: 201410, end: 201611
  8. PROTONIX [Suspect]
     Active Substance: PANTOPRAZOLE SODIUM
     Indication: Gastrooesophageal reflux disease
     Dosage: GENERIC
     Dates: start: 200911, end: 201611
  9. PROTONIX [Suspect]
     Active Substance: PANTOPRAZOLE SODIUM
     Indication: Gastrooesophageal reflux disease
     Dates: start: 2009, end: 2011
  10. PROTONIX [Suspect]
     Active Substance: PANTOPRAZOLE SODIUM
     Indication: Gastrooesophageal reflux disease
     Dates: start: 2014, end: 2016
  11. PROTONIX [Suspect]
     Active Substance: PANTOPRAZOLE SODIUM
     Indication: Gastrooesophageal reflux disease
     Dates: start: 2011, end: 2014
  12. PROGRAF [Concomitant]
     Active Substance: TACROLIMUS
     Indication: Infection
     Route: 065
     Dates: start: 2010, end: 2016
  13. PREDNISONE [Concomitant]
     Active Substance: PREDNISONE
     Indication: Antiinflammatory therapy
     Route: 065
     Dates: start: 200911, end: 201610
  14. TUMS [Concomitant]
     Active Substance: CALCIUM CARBONATE
     Dosage: AS NEEDED
     Route: 065
     Dates: start: 201611
  15. AMLODIPINE BESYLATE [Concomitant]
     Active Substance: AMLODIPINE BESYLATE
  16. LASIX [Concomitant]
     Active Substance: FUROSEMIDE
  17. ZETIA [Concomitant]
     Active Substance: EZETIMIBE
     Indication: Blood cholesterol decreased
     Dates: start: 201011, end: 201611
  18. LABETALOL [Concomitant]
     Active Substance: LABETALOL\LABETALOL HYDROCHLORIDE
  19. LORAZEPAM [Concomitant]
     Active Substance: LORAZEPAM
  20. ACETAMINOPHEN\OXYCODONE HYDROCHLORIDE [Concomitant]
     Active Substance: ACETAMINOPHEN\OXYCODONE HYDROCHLORIDE
  21. VITAMIN D [Concomitant]
     Active Substance: VITAMIN D NOS
  22. VITAMINS [Concomitant]
     Active Substance: VITAMINS
  23. ASPIRIN [Concomitant]
     Active Substance: ASPIRIN
  24. COZAAR [Concomitant]
     Active Substance: LOSARTAN POTASSIUM
  25. BENZONATATE [Concomitant]
     Active Substance: BENZONATATE
  26. XARELTO [Concomitant]
     Active Substance: RIVAROXABAN
  27. PROMETHAZINE [Concomitant]
     Active Substance: PROMETHAZINE HYDROCHLORIDE
  28. DICLOFENAC SODIUM/PANTOPRAZOLE SODIUM SESQUIHYDRATE [Concomitant]
  29. ONDANSETRON [Concomitant]
     Active Substance: ONDANSETRON
  30. PROAIR HFA [Concomitant]
     Active Substance: ALBUTEROL SULFATE
  31. AMMONIUM CHLORIDE\DEXTROMETHORPHAN\SODIUM CITRATE [Concomitant]
     Active Substance: AMMONIUM CHLORIDE\DEXTROMETHORPHAN\SODIUM CITRATE
  32. AZITHROMYCIN [Concomitant]
     Active Substance: AZITHROMYCIN
  33. FOLIC ACID [Concomitant]
     Active Substance: FOLIC ACID
  34. CYCLOSPORINE [Concomitant]
     Active Substance: CYCLOSPORINE
  35. CELLCEPT [Concomitant]
     Active Substance: MYCOPHENOLATE MOFETIL
  36. ELIQUIS [Concomitant]
     Active Substance: APIXABAN
  37. DEXAMETHASONE [Concomitant]
     Active Substance: DEXAMETHASONE
  38. DOXYCYCLINE [Concomitant]
     Active Substance: DOXYCYCLINE

REACTIONS (6)
  - Chronic kidney disease [Unknown]
  - Acute kidney injury [Recovering/Resolving]
  - End stage renal disease [Unknown]
  - Renal failure [Unknown]
  - Renal tubular necrosis [Unknown]
  - Renal tubular acidosis [Unknown]
